FAERS Safety Report 10577961 (Version 2)
Quarter: 2015Q1

REPORT INFORMATION
  Report Type: Spontaneous
  Country: US (occurrence: US)
  Receive Date: 20141112
  Receipt Date: 20150121
  Transmission Date: 20150720
  Serious: Yes (Other)
  Sender: FDA-Public Use
  Company Number: US-ASTRAZENECA-2014SE76839

PATIENT
  Age: 889 Month
  Sex: Female
  Weight: 64 kg

DRUGS (16)
  1. METHOTREXATE [Concomitant]
     Active Substance: METHOTREXATE
  2. VITAMIN B12 [Concomitant]
     Active Substance: CYANOCOBALAMIN
     Route: 060
  3. CRESTOR [Suspect]
     Active Substance: ROSUVASTATIN CALCIUM
     Indication: BLOOD CHOLESTEROL ABNORMAL
     Route: 048
     Dates: start: 2010, end: 2014
  4. SYNTHROID [Concomitant]
     Active Substance: LEVOTHYROXINE SODIUM
     Indication: THYROID DISORDER
  5. VITAMIN D-3 [Concomitant]
     Dosage: 1000 UNIT 1 CAPSULE ONCE A DAY
  6. FOLIC ACID. [Concomitant]
     Active Substance: FOLIC ACID
  7. BIOTIN [Concomitant]
     Active Substance: BIOTIN
  8. HCTZ [Concomitant]
     Active Substance: HYDROCHLOROTHIAZIDE
     Indication: HYPERTENSION
     Dates: start: 2009
  9. SYNTHROID [Concomitant]
     Active Substance: LEVOTHYROXINE SODIUM
     Indication: THYROID DISORDER
     Dosage: 85MCG 5 DAYS A WEEK
  10. MAGNESIUM [Concomitant]
     Active Substance: MAGNESIUM
     Dosage: ONCE A DAY
  11. SYNTHROID [Concomitant]
     Active Substance: LEVOTHYROXINE SODIUM
     Indication: THYROID DISORDER
     Dosage: 100MCG TWICE A WEEK
  12. ESTRACE [Concomitant]
     Active Substance: ESTRADIOL
  13. ICAPS [Concomitant]
     Active Substance: MINERALS\VITAMINS
  14. CRESTOR [Suspect]
     Active Substance: ROSUVASTATIN CALCIUM
     Indication: BLOOD CHOLESTEROL ABNORMAL
     Route: 048
     Dates: start: 2014, end: 2014
  15. PROTONIX [Concomitant]
     Active Substance: PANTOPRAZOLE SODIUM
  16. TRAVATAN [Concomitant]
     Active Substance: TRAVOPROST
     Dosage: 0.004% SOLUTION 1 DROP INTO AFFECTED EYE

REACTIONS (9)
  - Sinus node dysfunction [Not Recovered/Not Resolved]
  - Nausea [Unknown]
  - Blood cholesterol increased [Unknown]
  - Intentional product misuse [Unknown]
  - Myocardial ischaemia [Unknown]
  - Heart valve incompetence [Unknown]
  - Dyspnoea exertional [Unknown]
  - Fluid retention [Unknown]
  - Hypertension [Unknown]

NARRATIVE: CASE EVENT DATE: 201306
